FAERS Safety Report 20089362 (Version 1)
Quarter: 2021Q4

REPORT INFORMATION
  Report Type: Spontaneous
  Country: US (occurrence: US)
  Receive Date: 20211119
  Receipt Date: 20211119
  Transmission Date: 20220303
  Serious: No
  Sender: FDA-Public Use
  Company Number: US-ELI_LILLY_AND_COMPANY-US202111007467

PATIENT
  Sex: Female

DRUGS (3)
  1. HUMULIN N [Suspect]
     Active Substance: INSULIN HUMAN
     Indication: Diabetes mellitus
     Dosage: 36 U, EACH MORNING
     Route: 058
     Dates: start: 2020
  2. HUMULIN N [Suspect]
     Active Substance: INSULIN HUMAN
     Dosage: 36 U, EACH MORNING
     Route: 058
  3. HUMULIN N [Suspect]
     Active Substance: INSULIN HUMAN
     Indication: Diabetes mellitus
     Dosage: 36 U, EACH MORNING
     Route: 058

REACTIONS (2)
  - Blood glucose decreased [Unknown]
  - Expired product administered [Unknown]
